FAERS Safety Report 23798065 (Version 1)
Quarter: 2024Q2

REPORT INFORMATION
  Report Type: Spontaneous
  Country: CN (occurrence: CN)
  Receive Date: 20240430
  Receipt Date: 20240430
  Transmission Date: 20240716
  Serious: Yes (Hospitalization)
  Sender: FDA-Public Use
  Company Number: CN-JNJFOC-20240464891

PATIENT
  Age: 22 Year
  Sex: Female
  Weight: 64.5 kg

DRUGS (2)
  1. TYLENOL [Suspect]
     Active Substance: ACETAMINOPHEN
     Indication: Pyrexia
     Route: 048
     Dates: start: 20231230
  2. TYLENOL [Suspect]
     Active Substance: ACETAMINOPHEN
     Dosage: 2.5G PO FOR ABOUT 4 DAYS
     Route: 048
     Dates: end: 20240111

REACTIONS (5)
  - Drug-induced liver injury [Recovering/Resolving]
  - Infection [Unknown]
  - Haemolytic anaemia [Unknown]
  - Exposure during pregnancy [Unknown]
  - Incorrect product administration duration [Unknown]

NARRATIVE: CASE EVENT DATE: 20231230
